FAERS Safety Report 8583485 (Version 2)
Quarter: 2013Q1

REPORT INFORMATION
  Report Type: Spontaneous
  Country: US (occurrence: US)
  Receive Date: 20120529
  Receipt Date: 20130115
  Transmission Date: 20140127
  Serious: Yes (Hospitalization, Disabling)
  Sender: FDA-Public Use
  Company Number: US-BAYER-2012-052064

PATIENT
  Age: 43 Year
  Sex: Female
  Weight: 104.76 kg

DRUGS (5)
  1. YASMIN [Suspect]
     Indication: CONTRACEPTION
     Dosage: UNK
     Dates: start: 200306, end: 20060927
  2. YASMIN [Suspect]
     Indication: MENSTRUAL CYCLE MANAGEMENT
  3. OTC PRN [Concomitant]
  4. BIAXIN [Concomitant]
     Dosage: 500 MG, BID
  5. HISTUSSIN HC [Concomitant]

REACTIONS (20)
  - Superior sagittal sinus thrombosis [None]
  - Brain oedema [None]
  - Haemorrhagic stroke [None]
  - Cerebral infarction [None]
  - Convulsion [None]
  - Injury [None]
  - Pain [None]
  - Emotional distress [None]
  - General physical health deterioration [None]
  - Anxiety [None]
  - Pain [None]
  - Memory impairment [None]
  - Disturbance in attention [None]
  - Aphasia [None]
  - Sinus headache [None]
  - Altered visual depth perception [None]
  - Coordination abnormal [None]
  - Muscle twitching [None]
  - Loss of consciousness [None]
  - Hemiparesis [None]
